FAERS Safety Report 24377152 (Version 1)
Quarter: 2024Q3

REPORT INFORMATION
  Report Type: Report from Study
  Country: NL (occurrence: NL)
  Receive Date: 20240930
  Receipt Date: 20240930
  Transmission Date: 20241016
  Serious: Yes (Death)
  Sender: ABBVIE
  Company Number: NL-ABBVIE-5940613

PATIENT
  Sex: Male

DRUGS (8)
  1. CARBIDOPA\LEVODOPA [Suspect]
     Active Substance: CARBIDOPA\LEVODOPA
     Indication: Parkinson^s disease
     Dosage: MD 5.5 ML; CD 6.1 ML/H; ED 4.7 ML; CND 3.8 ML/H?DURATION: REMAINS AT 24 HOURS
     Route: 050
     Dates: start: 20240405, end: 20240719
  2. CARBIDOPA\LEVODOPA [Suspect]
     Active Substance: CARBIDOPA\LEVODOPA
     Dosage: MD 5.5 ML; CD 6.1 ML/H; ED 4.7 ML; CND 3.8 ML/H?DURATION: REMAINS AT 24 HOURS
     Route: 050
     Dates: start: 20240719, end: 20240827
  3. CARBIDOPA\LEVODOPA [Suspect]
     Active Substance: CARBIDOPA\LEVODOPA
     Dosage: DURATION: REMAINS AT 16 HOURS
     Route: 050
     Dates: start: 20190419
  4. CARBIDOPA\LEVODOPA [Suspect]
     Active Substance: CARBIDOPA\LEVODOPA
     Dosage: MD 5.5 ML; CD 6.1 ML/H; ED 4.7 ML; END 4.0 ML; CND 3.8 ML/H
     Route: 050
     Dates: start: 20240827, end: 20240921
  5. POLYETHYLENE GLYCOLS [Concomitant]
     Active Substance: POLYETHYLENE GLYCOLS
     Indication: Abnormal faeces
  6. MAGNESIUM [Concomitant]
     Active Substance: MAGNESIUM
     Indication: Abnormal faeces
  7. RIVASTIGMINE [Concomitant]
     Active Substance: RIVASTIGMINE
     Indication: Hallucination
  8. CLOZAPINE [Concomitant]
     Active Substance: CLOZAPINE
     Indication: Hallucination

REACTIONS (1)
  - General physical health deterioration [Fatal]
